FAERS Safety Report 14666909 (Version 3)
Quarter: 2018Q3

REPORT INFORMATION
  Report Type: Spontaneous
  Country: JP (occurrence: JP)
  Receive Date: 20180322
  Receipt Date: 20180910
  Transmission Date: 20181010
  Serious: Yes (Hospitalization, Other)
  Sender: FDA-Public Use
  Company Number: JP-BRISTOL-MYERS SQUIBB COMPANY-BMS-2018-025286

PATIENT
  Age: 45 Year
  Sex: Female

DRUGS (1)
  1. OPDIVO [Suspect]
     Active Substance: NIVOLUMAB
     Indication: GASTRIC CANCER RECURRENT
     Dosage: 3 MG/M2, Q2WK
     Route: 041
     Dates: start: 20171214

REACTIONS (2)
  - Metastases to meninges [Not Recovered/Not Resolved]
  - Herpes zoster [Recovered/Resolved]

NARRATIVE: CASE EVENT DATE: 201803
